FAERS Safety Report 7297240-3 (Version None)
Quarter: 2011Q1

REPORT INFORMATION
  Report Type: 
  Country: None (occurrence: None)
  Receive Date: 20110216
  Receipt Date: 20110124
  Transmission Date: 20110831
  Serious: No
  Sender: FDA-Public Use
  Company Number: US-B.I. PHARMACEUTICALS,INC./RIDGEFIELD-2011-BP-02540BP

PATIENT
  Age: 64 Year
  Sex: Male

DRUGS (4)
  1. TENORMIN [Concomitant]
     Indication: HYPERTENSION
  2. PRADAXA [Suspect]
     Indication: CEREBROVASCULAR ACCIDENT PROPHYLAXIS
  3. PRADAXA [Suspect]
     Indication: ATRIAL FIBRILLATION
     Dosage: 300 MG
     Route: 048
     Dates: start: 20101206, end: 20110114
  4. ZESTRIL [Concomitant]

REACTIONS (1)
  - FATIGUE [None]
